FAERS Safety Report 8183716-3 (Version None)
Quarter: 2012Q1

REPORT INFORMATION
  Report Type: 
  Country: None (occurrence: None)
  Receive Date: 20120305
  Receipt Date: 20120228
  Transmission Date: 20120608
  Serious: Yes (Death, Other)
  Sender: FDA-Public Use
  Company Number: PHHY2012JP011458

PATIENT
  Age: 80 Year
  Sex: Female

DRUGS (1)
  1. RIVASTIGMINE [Suspect]
     Indication: DEMENTIA ALZHEIMER'S TYPE
     Dosage: 4.5 MG, DAILY
     Route: 062
     Dates: start: 20120126

REACTIONS (5)
  - RESPIRATORY FAILURE [None]
  - HYPOXIA [None]
  - ASPIRATION [None]
  - CARDIAC FAILURE [None]
  - WHEEZING [None]
